FAERS Safety Report 9942889 (Version 2)
Quarter: 2014Q1

REPORT INFORMATION
  Report Type: Spontaneous
  Country: DE (occurrence: DE)
  Receive Date: 20140303
  Receipt Date: 20140303
  Transmission Date: 20141002
  Serious: Yes (Death, Hospitalization, Other)
  Sender: FDA-Public Use
  Company Number: DE-BAXTER-2014BAX005439

PATIENT
  Age: 64 Year
  Sex: Male
  Weight: 60.8 kg

DRUGS (28)
  1. EXTRANEAL [Suspect]
     Indication: PERITONEAL DIALYSIS
     Route: 033
     Dates: start: 20140104, end: 20140105
  2. EXTRANEAL [Suspect]
     Indication: RENAL FAILURE CHRONIC
  3. PHYSIONEAL 35 GLUCOSE 1,36 % W/V 13,6 MG/ML PERITONEALDIALYSEL?SUNG [Suspect]
     Indication: PERITONEAL DIALYSIS
     Route: 033
     Dates: start: 20140104, end: 20140105
  4. PHYSIONEAL 35 GLUCOSE 1,36 % W/V 13,6 MG/ML PERITONEALDIALYSEL?SUNG [Suspect]
     Indication: RENAL FAILURE CHRONIC
  5. MARCUMAR [Concomitant]
     Indication: DERMATITIS CONTACT
     Dates: start: 1997
  6. MARCUMAR [Concomitant]
     Indication: ATRIAL FIBRILLATION
  7. DIGITOXIN [Concomitant]
     Indication: CARDIAC FAILURE
  8. DIGITOXIN [Concomitant]
     Indication: ATRIAL FIBRILLATION
  9. FOLSAN [Concomitant]
     Indication: ANAEMIA
  10. FUROSEMIDE [Concomitant]
     Indication: CARDIAC FAILURE
  11. PANTOPRAZOLE [Concomitant]
     Indication: ABDOMINAL PAIN
  12. PANTOPRAZOLE [Concomitant]
     Indication: GASTRIC DISORDER
  13. SPIRONOLACTONE [Concomitant]
     Indication: CARDIAC FAILURE
  14. SYMBICORT [Concomitant]
     Indication: CHRONIC OBSTRUCTIVE PULMONARY DISEASE
  15. SYMBICORT [Concomitant]
  16. XIPAMID [Concomitant]
     Indication: CARDIAC FAILURE
  17. XIPAMID [Concomitant]
     Indication: HYPERTENSION
  18. BISOPROLOL [Concomitant]
     Indication: CARDIAC FAILURE
  19. BISOPROLOL [Concomitant]
     Indication: HYPERTENSION
  20. LOSARTAN [Concomitant]
     Indication: CARDIAC FAILURE
  21. LOSARTAN [Concomitant]
     Indication: HYPERTENSION
  22. OXCARBAZEPINE [Concomitant]
     Indication: EPILEPSY
  23. SIMVASTATIN [Concomitant]
     Indication: HYPERLIPIDAEMIA
  24. HALDOL DROPS [Concomitant]
     Indication: RESTLESSNESS
  25. CLEXANE [Concomitant]
     Indication: ANTICOAGULANT THERAPY
  26. CLEXANE [Concomitant]
  27. EPOETIN ALFA [Concomitant]
     Indication: NEPHROGENIC ANAEMIA
  28. FERRLECIT [Concomitant]
     Indication: NEPHROGENIC ANAEMIA

REACTIONS (11)
  - Erythema multiforme [Fatal]
  - Septic shock [Fatal]
  - Endocarditis [Fatal]
  - Multi-organ failure [Fatal]
  - Staphylococcal sepsis [Unknown]
  - Herpes simplex pneumonia [Unknown]
  - Metabolic acidosis [Unknown]
  - Intestinal ischaemia [Unknown]
  - Coagulopathy [Unknown]
  - Acute hepatic failure [Unknown]
  - Respiratory gas exchange disorder [Unknown]
